FAERS Safety Report 17649241 (Version 1)
Quarter: 2020Q2

REPORT INFORMATION
  Report Type: Spontaneous
  Country: US (occurrence: US)
  Receive Date: 20200409
  Receipt Date: 20200409
  Transmission Date: 20200713
  Serious: Yes (Other)
  Sender: FDA-Public Use
  Company Number: US-SA-2020SA088937

PATIENT
  Sex: Female

DRUGS (1)
  1. ZANTAC [Suspect]
     Active Substance: RANITIDINE HYDROCHLORIDE

REACTIONS (4)
  - Emotional distress [Unknown]
  - Anxiety [Unknown]
  - Non-Hodgkin^s lymphoma [Unknown]
  - Pain [Unknown]

NARRATIVE: CASE EVENT DATE: 201404
